FAERS Safety Report 20502700 (Version 14)
Quarter: 2024Q1

REPORT INFORMATION
  Report Type: Report from Study
  Country: CA (occurrence: CA)
  Receive Date: 20220222
  Receipt Date: 20240216
  Transmission Date: 20240409
  Serious: Yes (Hospitalization, Other)
  Sender: FDA-Public Use
  Company Number: CA-Taiho Oncology Inc-EU-2022-00425

PATIENT
  Age: 74 Year
  Sex: Female
  Weight: 63.2 kg

DRUGS (2)
  1. LONSURF [Suspect]
     Active Substance: TIPIRACIL HYDROCHLORIDE\TRIFLURIDINE
     Indication: Colorectal cancer metastatic
     Dosage: CURRENT CYCLE UNKNOWN.
     Route: 048
     Dates: start: 20210505
  2. LONSURF [Suspect]
     Active Substance: TIPIRACIL HYDROCHLORIDE\TRIFLURIDINE
     Dosage: CURRENT CYCLE UNKNOWN.
     Route: 048

REACTIONS (13)
  - Neutrophil count decreased [Unknown]
  - Lethargy [Unknown]
  - Fatigue [Unknown]
  - Haemoglobin decreased [Unknown]
  - COVID-19 [Unknown]
  - Hypotension [Unknown]
  - Lip squamous cell carcinoma [Unknown]
  - Blood potassium decreased [Unknown]
  - Cytopenia [Recovering/Resolving]
  - Malaise [Unknown]
  - Abdominal discomfort [Recovering/Resolving]
  - Diarrhoea [Recovering/Resolving]
  - Insomnia [Not Recovered/Not Resolved]

NARRATIVE: CASE EVENT DATE: 20221205
